FAERS Safety Report 5326604-X (Version None)
Quarter: 2007Q2

REPORT INFORMATION
  Report Type: 
  Country: None (occurrence: None)
  Receive Date: 20070516
  Receipt Date: 20070504
  Transmission Date: 20071010
  Serious: Yes (Other)
  Sender: FDA-Public Use
  Company Number: US-PFIZER INC-2006041100

PATIENT
  Sex: Male
  Weight: 93.4 kg

DRUGS (8)
  1. VIAGRA [Suspect]
     Indication: ERECTILE DYSFUNCTION
     Dates: start: 20000303, end: 20010101
  2. DILTIAZEM HCL [Concomitant]
  3. WARFARIN SODIUM [Concomitant]
     Dates: start: 19990101
  4. CHLORTHALIDONE [Concomitant]
     Dates: start: 19750101
  5. DIGOXIN [Concomitant]
     Dates: start: 19990101
  6. K-DUR 10 [Concomitant]
     Dates: start: 19970101
  7. CENTRUM SILVER [Concomitant]
     Dates: start: 19900101
  8. TYLENOL [Concomitant]
     Dates: start: 19910101

REACTIONS (2)
  - BLINDNESS UNILATERAL [None]
  - OPTIC ISCHAEMIC NEUROPATHY [None]
